FAERS Safety Report 16116864 (Version 1)
Quarter: 2019Q1

REPORT INFORMATION
  Report Type: Report from Study
  Country: CN (occurrence: CN)
  Receive Date: 20190326
  Receipt Date: 20190326
  Transmission Date: 20190418
  Serious: Yes (Other)
  Sender: FDA-Public Use
  Company Number: CN-ROCHE-2283657

PATIENT

DRUGS (3)
  1. LIPIODOL [Concomitant]
     Active Substance: ETHIODIZED OIL
  2. BEVACIZUMAB. [Suspect]
     Active Substance: BEVACIZUMAB
     Indication: HEPATOCELLULAR CARCINOMA
     Route: 065
  3. EPIRUBICIN [Concomitant]
     Active Substance: EPIRUBICIN
     Dosage: 40-60 MG
     Route: 065

REACTIONS (1)
  - Myocardial necrosis marker increased [Unknown]
